FAERS Safety Report 8105181-4 (Version None)
Quarter: 2012Q1

REPORT INFORMATION
  Report Type: 
  Country: None (occurrence: None)
  Receive Date: 20120201
  Receipt Date: 20120124
  Transmission Date: 20120608
  Serious: Yes (Hospitalization)
  Sender: FDA-Public Use
  Company Number: DE-ABBOTT-12P-062-0897706-00

PATIENT
  Sex: Male
  Weight: 100 kg

DRUGS (15)
  1. TORSEMIDE [Concomitant]
     Indication: PRODUCT USED FOR UNKNOWN INDICATION
     Dosage: 30MG DAILY
     Dates: start: 20091028
  2. LEVEMIR [Concomitant]
     Indication: PRODUCT USED FOR UNKNOWN INDICATION
     Dosage: 42IU DAILY
  3. ZEMPLAR [Suspect]
     Dates: start: 20110507, end: 20110810
  4. LOGIMAT [Concomitant]
     Indication: PRODUCT USED FOR UNKNOWN INDICATION
     Dates: start: 20091028
  5. DEKRISTOL [Concomitant]
     Indication: PRODUCT USED FOR UNKNOWN INDICATION
     Dates: start: 20100801
  6. ZEMPLAR [Suspect]
     Route: 042
     Dates: start: 20110819, end: 20110909
  7. SIMVA HENNIG [Concomitant]
     Indication: PRODUCT USED FOR UNKNOWN INDICATION
     Dosage: 10MG DAILY
     Dates: start: 20091028
  8. ASPIRIN [Concomitant]
     Indication: PRODUCT USED FOR UNKNOWN INDICATION
     Dosage: 100MG DAILY
     Dates: start: 20091028
  9. OMEPRAZOLE [Concomitant]
     Indication: PRODUCT USED FOR UNKNOWN INDICATION
     Dosage: 20MG DAILY
     Dates: start: 20091028
  10. ZEMPLAR [Suspect]
     Indication: HYPOPARATHYROIDISM SECONDARY
     Dosage: 1MCG DAILY
     Route: 048
     Dates: start: 20110323, end: 20110503
  11. AMIODURA [Concomitant]
     Indication: PRODUCT USED FOR UNKNOWN INDICATION
     Dosage: 200MG DAILY
  12. ACETYLCYSTEINE [Concomitant]
     Indication: PRODUCT USED FOR UNKNOWN INDICATION
     Dosage: 600MG DAILY
     Dates: start: 20091028
  13. SPIRIVA [Concomitant]
     Indication: PRODUCT USED FOR UNKNOWN INDICATION
     Dates: start: 20091028
  14. FLUTICASONE PROPIONATE/SALMETEROL [Concomitant]
     Indication: PRODUCT USED FOR UNKNOWN INDICATION
     Dosage: 50/250 MCG
  15. ATACAND [Concomitant]
     Indication: PRODUCT USED FOR UNKNOWN INDICATION
     Dosage: 16MG DAILY
     Dates: start: 20110802

REACTIONS (6)
  - DYSPNOEA [None]
  - DIALYSIS [None]
  - BLOOD PARATHYROID HORMONE DECREASED [None]
  - CHEST PAIN [None]
  - CARDIAC FAILURE [None]
  - RENAL FAILURE [None]
